FAERS Safety Report 9737274 (Version 1)
Quarter: 2013Q4

REPORT INFORMATION
  Report Type: Spontaneous
  Country: US (occurrence: US)
  Receive Date: 20131206
  Receipt Date: 20131206
  Transmission Date: 20140711
  Serious: No
  Sender: FDA-Public Use
  Company Number: US-BIOGENIDEC-2013BI092198

PATIENT
  Age: 66 Year
  Sex: Female

DRUGS (9)
  1. TECFIDERA [Suspect]
     Indication: MULTIPLE SCLEROSIS
     Route: 048
     Dates: start: 20130826
  2. CALCIUM [Concomitant]
     Indication: PRODUCT USED FOR UNKNOWN INDICATION
  3. VITAMIN D [Concomitant]
     Indication: PRODUCT USED FOR UNKNOWN INDICATION
  4. BACLOFEN [Concomitant]
  5. FISH OIL [Concomitant]
  6. IMPRAMINE [Concomitant]
  7. OXYBUTYNIN [Concomitant]
  8. SIMVISTATIN [Concomitant]
  9. TAMULOSIN HCL [Concomitant]

REACTIONS (1)
  - Flushing [Unknown]
